FAERS Safety Report 24942369 (Version 3)
Quarter: 2025Q1

REPORT INFORMATION
  Report Type: Report from Study
  Country: US (occurrence: US)
  Receive Date: 20250207
  Receipt Date: 20250213
  Transmission Date: 20250409
  Serious: No
  Sender: NOVARTIS
  Company Number: US-002147023-NVSC2024US126720

PATIENT
  Sex: Female

DRUGS (1)
  1. KESIMPTA [Suspect]
     Active Substance: OFATUMUMAB
     Indication: Product used for unknown indication
     Dosage: 20 MG, QMO
     Route: 058

REACTIONS (6)
  - Fatigue [Recovering/Resolving]
  - Somnolence [Unknown]
  - Headache [Recovering/Resolving]
  - Gastrointestinal disorder [Unknown]
  - Therapeutic response shortened [Unknown]
  - Sensitivity to weather change [Unknown]
